FAERS Safety Report 9659545 (Version 2)
Quarter: 2013Q4

REPORT INFORMATION
  Report Type: Report from Study
  Country: CA (occurrence: CA)
  Receive Date: 20131031
  Receipt Date: 20131220
  Transmission Date: 20140711
  Serious: Yes (Other)
  Sender: FDA-Public Use
  Company Number: CA-JNJFOC-20131014866

PATIENT
  Age: 50 Year
  Sex: Female
  Weight: 91.3 kg

DRUGS (8)
  1. REMICADE [Suspect]
     Indication: ANKYLOSING SPONDYLITIS
     Route: 042
     Dates: start: 20031204
  2. REMICADE [Suspect]
     Indication: ANKYLOSING SPONDYLITIS
     Route: 042
     Dates: start: 2012
  3. PANTOLOC [Concomitant]
     Route: 065
  4. VOLTAREN [Concomitant]
     Route: 065
  5. IMURAN [Concomitant]
     Route: 065
  6. VITAMIN C [Concomitant]
     Route: 065
  7. PERCOCET [Concomitant]
     Dosage: 1 TAB PRN
     Route: 065
  8. TYLENOL EXTRA STRENGTH [Concomitant]
     Dosage: 1 OR 2 TABS PRN
     Route: 065

REACTIONS (2)
  - Breast disorder [Recovered/Resolved]
  - Skin infection [Recovered/Resolved]
